FAERS Safety Report 5494789-0 (Version None)
Quarter: 2007Q4

REPORT INFORMATION
  Report Type: 
  Country: None (occurrence: None)
  Receive Date: 20071015
  Receipt Date: 20070808
  Transmission Date: 20080405
  Serious: No
  Sender: FDA-Public Use
  Company Number: 2007SP002797

PATIENT
  Age: 69 Year
  Sex: Male
  Weight: 61.2356 kg

DRUGS (4)
  1. LUNESTA [Suspect]
     Indication: INSOMNIA
     Dosage: 2 MG;PRN;ORAL
     Route: 048
     Dates: start: 20070201
  2. VITAMINS [Concomitant]
  3. ALLERGY MEDICATION [Concomitant]
  4. ACETYLSALICYLIC ACID SRT [Concomitant]

REACTIONS (3)
  - DRUG INEFFECTIVE [None]
  - DRY MOUTH [None]
  - MIDDLE INSOMNIA [None]
